FAERS Safety Report 4404337-1 (Version None)
Quarter: 2004Q3

REPORT INFORMATION
  Report Type: 
  Country: None (occurrence: None)
  Receive Date: 20040714
  Receipt Date: 20040629
  Transmission Date: 20050211
  Serious: Yes (Hospitalization)
  Sender: FDA-Public Use
  Company Number: 200410194BBE

PATIENT
  Sex: Male

DRUGS (1)
  1. PROLASTIN [Suspect]
     Indication: ALPHA-1 ANTI-TRYPSIN DEFICIENCY
     Dosage: INTRAVENOUS
     Route: 042

REACTIONS (4)
  - BLOOD GASES ABNORMAL [None]
  - BODY TEMPERATURE INCREASED [None]
  - DYSPNOEA [None]
  - PARADOXICAL DRUG REACTION [None]
